FAERS Safety Report 18556499 (Version 3)
Quarter: 2021Q4

REPORT INFORMATION
  Report Type: Report from Study
  Country: US (occurrence: US)
  Receive Date: 20201128
  Receipt Date: 20211104
  Transmission Date: 20220303
  Serious: Yes (Hospitalization, Other)
  Sender: FDA-Public Use
  Company Number: US-TAKEDA-2020TUS051499

PATIENT
  Age: 45 Year
  Sex: Female

DRUGS (12)
  1. TEDUGLUTIDE [Suspect]
     Active Substance: TEDUGLUTIDE
     Indication: Short-bowel syndrome
     Dosage: 3.5 MILLIGRAM (0.05 MG/KG DAILY DOSE), 7 DOSES PER WEEK
     Route: 065
     Dates: start: 20180401
  2. TEDUGLUTIDE [Suspect]
     Active Substance: TEDUGLUTIDE
     Indication: Short-bowel syndrome
     Dosage: 3.5 MILLIGRAM (0.05 MG/KG DAILY DOSE), 7 DOSES PER WEEK
     Route: 065
     Dates: start: 20180401
  3. TEDUGLUTIDE [Suspect]
     Active Substance: TEDUGLUTIDE
     Indication: Short-bowel syndrome
     Dosage: 3.5 MILLIGRAM (0.05 MG/KG DAILY DOSE), 7 DOSES PER WEEK
     Route: 065
     Dates: start: 20180401
  4. TEDUGLUTIDE [Suspect]
     Active Substance: TEDUGLUTIDE
     Indication: Short-bowel syndrome
     Dosage: 3.5 MILLIGRAM (0.05 MG/KG DAILY DOSE), 7 DOSES PER WEEK
     Route: 065
     Dates: start: 20180401
  5. XARELTO [Concomitant]
     Active Substance: RIVAROXABAN
     Indication: Atrial thrombosis
     Dosage: 15 MILLIGRAM, BID
     Route: 048
     Dates: start: 20200802, end: 20200822
  6. XARELTO [Concomitant]
     Active Substance: RIVAROXABAN
     Dosage: 20 MILLIGRAM, QD
     Route: 048
     Dates: start: 20200823
  7. VANCOMYCIN [Concomitant]
     Active Substance: VANCOMYCIN
     Indication: Staphylococcal infection
     Dosage: 1 GRAM, BID
     Route: 042
     Dates: start: 20200806, end: 20200811
  8. VANCOMYCIN [Concomitant]
     Active Substance: VANCOMYCIN
     Dosage: 750 MILLIGRAM, BID
     Route: 042
     Dates: start: 20200728, end: 20200805
  9. HYDROMORPHONE [Concomitant]
     Active Substance: HYDROMORPHONE
     Indication: Abdominal pain
     Dosage: 1 MILLIGRAM
     Route: 042
     Dates: start: 20201221, end: 20201221
  10. HYDROMORPHONE [Concomitant]
     Active Substance: HYDROMORPHONE
     Indication: Colitis
     Dosage: 99.9 MILLIGRAM, PRN
     Route: 042
     Dates: start: 20210211, end: 20210504
  11. NARCAN [Concomitant]
     Active Substance: NALOXONE HYDROCHLORIDE
     Indication: Toxic encephalopathy
     Dosage: 0.40 MILLIGRAM
     Route: 042
     Dates: start: 20201115, end: 20201115
  12. AMBIEN [Concomitant]
     Active Substance: ZOLPIDEM TARTRATE
     Indication: Insomnia
     Dosage: 5 MILLIGRAM, QD
     Route: 048
     Dates: start: 20210311, end: 20210504

REACTIONS (3)
  - Toxic encephalopathy [Recovered/Resolved]
  - Joint injury [Recovered/Resolved]
  - Abdominal pain [Recovered/Resolved]

NARRATIVE: CASE EVENT DATE: 20201101
